FAERS Safety Report 7075008-0 (Version None)
Quarter: 2010Q4

REPORT INFORMATION
  Report Type: 
  Country: None (occurrence: None)
  Receive Date: 20101029
  Receipt Date: 20100223
  Transmission Date: 20110411
  Serious: No
  Sender: FDA-Public Use
  Company Number: US-WYE-H13798710

PATIENT
  Age: 57 Year
  Sex: Female
  Weight: 72.19 kg

DRUGS (7)
  1. ADVIL PM [Suspect]
     Indication: INSOMNIA
     Dosage: 2-3 CAPLETS
     Route: 048
     Dates: start: 20100201, end: 20100201
  2. ADVIL PM [Suspect]
     Dosage: 2-3 CAPLETS
     Route: 048
     Dates: start: 20100221, end: 20100221
  3. BIOTIN [Concomitant]
  4. CALCIUM [Concomitant]
  5. ZYRTEC [Concomitant]
  6. FISH OIL [Concomitant]
  7. ACETYLSALICYLIC ACID SRT [Concomitant]

REACTIONS (5)
  - AGITATION [None]
  - CHILLS [None]
  - HOT FLUSH [None]
  - NERVOUSNESS [None]
  - OVERDOSE [None]
